FAERS Safety Report 18965013 (Version 1)
Quarter: 2021Q1

REPORT INFORMATION
  Report Type: Spontaneous
  Country: US (occurrence: US)
  Receive Date: 20210303
  Receipt Date: 20210303
  Transmission Date: 20210420
  Serious: No
  Sender: FDA-Public Use
  Company Number: US-AMNEAL PHARMACEUTICALS-2020-AMRX-01734

PATIENT
  Sex: Male

DRUGS (2)
  1. RYTARY [Suspect]
     Active Substance: CARBIDOPA\LEVODOPA
     Indication: PARKINSON^S DISEASE
     Dosage: 3 CAPSULES, 4 /DAY
     Route: 048
     Dates: end: 20201209
  2. RYTARY [Suspect]
     Active Substance: CARBIDOPA\LEVODOPA
     Dosage: 15 CAPSULES, DAILY (4 CAPSULES 3X/DAY AND 3 CAPSULES AT NIGHT)
     Route: 048
     Dates: start: 20201210

REACTIONS (1)
  - Weight increased [Unknown]
